FAERS Safety Report 12186679 (Version 2)
Quarter: 2016Q1

REPORT INFORMATION
  Report Type: Report from Study
  Country: CN (occurrence: CN)
  Receive Date: 20160317
  Receipt Date: 20160322
  Transmission Date: 20160526
  Serious: Yes (Hospitalization)
  Sender: FDA-Public Use
  Company Number: CN-ARBOR PHARMACEUTICALS, LLC-CN-2016ARB000223

PATIENT

DRUGS (2)
  1. BLINDED VALSARTAN [Suspect]
     Active Substance: VALSARTAN
     Indication: ESSENTIAL HYPERTENSION
     Dosage: 80 MG, QD
     Route: 048
     Dates: start: 20160120, end: 20160302
  2. BLINDED AZILSARTAN MEDOXOMIL [Suspect]
     Active Substance: AZILSARTAN KAMEDOXOMIL
     Indication: ESSENTIAL HYPERTENSION
     Dosage: 80 MG, QD
     Route: 048
     Dates: start: 20160120, end: 20160302

REACTIONS (1)
  - Hypertension [Recovered/Resolved]

NARRATIVE: CASE EVENT DATE: 20160301
